FAERS Safety Report 4578390-9 (Version None)
Quarter: 2005Q1

REPORT INFORMATION
  Report Type: 
  Country: None (occurrence: None)
  Receive Date: 20050202
  Receipt Date: 20050202
  Transmission Date: 20050727
  Serious: Yes (Hospitalization)
  Sender: FDA-Public Use
  Company Number: None

PATIENT
  Age: 74 Year
  Sex: Female
  Weight: 136 kg

DRUGS (5)
  1. CELECOXIB (CELEREX) [Suspect]
     Indication: PAIN
     Dosage: 200 MG PO DAILY [6 MONTHS PRIOR TO ADMIT]
     Route: 048
  2. DIOVAN [Suspect]
     Indication: HYPERTENSION
     Dosage: 160 MG PO Q DAILY [ 6 MO PRIOR TO ADMIT]
     Route: 048
  3. LASIX [Concomitant]
  4. METOPROLOL TARTRATE [Concomitant]
  5. SYNTHROID [Concomitant]

REACTIONS (2)
  - IMPLANT SITE INFECTION [None]
  - RENAL FAILURE ACUTE [None]
